FAERS Safety Report 16694428 (Version 1)
Quarter: 2019Q3

REPORT INFORMATION
  Report Type: Spontaneous
  Country: ES (occurrence: ES)
  Receive Date: 20190812
  Receipt Date: 20190812
  Transmission Date: 20191004
  Serious: Yes (Hospitalization)
  Sender: FDA-Public Use
  Company Number: ES-CELGENEUS-ESP-20190609808

PATIENT
  Age: 50 Year
  Sex: Male
  Weight: 76.9 kg

DRUGS (26)
  1. ABRAXANE [Suspect]
     Active Substance: PACLITAXEL
     Route: 041
     Dates: start: 20190306, end: 20190306
  2. ABRAXANE [Suspect]
     Active Substance: PACLITAXEL
     Route: 041
     Dates: start: 20190513, end: 20190513
  3. GEMCITABINE. [Concomitant]
     Active Substance: GEMCITABINE
     Route: 041
     Dates: start: 20190227, end: 20190227
  4. GEMCITABINE. [Concomitant]
     Active Substance: GEMCITABINE
     Route: 041
     Dates: start: 20190306, end: 20190306
  5. GEMCITABINE. [Concomitant]
     Active Substance: GEMCITABINE
     Route: 041
     Dates: start: 20190520, end: 20190520
  6. ABRAXANE [Suspect]
     Active Substance: PACLITAXEL
     Route: 041
     Dates: start: 20190227, end: 20190227
  7. OLECLUMAB. [Concomitant]
     Active Substance: OLECLUMAB
     Route: 041
     Dates: start: 20190213, end: 20190213
  8. OLECLUMAB. [Concomitant]
     Active Substance: OLECLUMAB
     Route: 041
     Dates: start: 20190227, end: 20190227
  9. OLECLUMAB. [Concomitant]
     Active Substance: OLECLUMAB
     Route: 041
     Dates: start: 20190319, end: 20190319
  10. GEMCITABINE. [Concomitant]
     Active Substance: GEMCITABINE
     Route: 041
     Dates: start: 20190213, end: 20190213
  11. GEMCITABINE. [Concomitant]
     Active Substance: GEMCITABINE
     Route: 041
     Dates: start: 20190319, end: 20190319
  12. ABRAXANE [Suspect]
     Active Substance: PACLITAXEL
     Route: 041
     Dates: start: 20190410, end: 20190410
  13. GEMCITABINE. [Concomitant]
     Active Substance: GEMCITABINE
     Route: 041
     Dates: start: 20190130, end: 20190130
  14. ABRAXANE [Suspect]
     Active Substance: PACLITAXEL
     Indication: PANCREATIC CARCINOMA METASTATIC
     Route: 041
     Dates: start: 20190123, end: 20190123
  15. OLECLUMAB. [Concomitant]
     Active Substance: OLECLUMAB
     Route: 041
     Dates: start: 20190404, end: 20190404
  16. GEMCITABINE. [Concomitant]
     Active Substance: GEMCITABINE
     Indication: PANCREATIC CARCINOMA METASTATIC
     Route: 041
     Dates: start: 20190123, end: 20190123
  17. ABRAXANE [Suspect]
     Active Substance: PACLITAXEL
     Route: 041
     Dates: start: 20190130, end: 20190130
  18. ABRAXANE [Suspect]
     Active Substance: PACLITAXEL
     Route: 041
     Dates: start: 20190520, end: 20190520
  19. OLECLUMAB. [Concomitant]
     Active Substance: OLECLUMAB
     Indication: PANCREATIC CARCINOMA METASTATIC
     Route: 041
     Dates: start: 20190123, end: 20190123
  20. GEMCITABINE. [Concomitant]
     Active Substance: GEMCITABINE
     Route: 041
     Dates: start: 20190410, end: 20190410
  21. GEMCITABINE. [Concomitant]
     Active Substance: GEMCITABINE
     Route: 041
     Dates: start: 20190513, end: 20190513
  22. ABRAXANE [Suspect]
     Active Substance: PACLITAXEL
     Route: 041
     Dates: start: 20190213, end: 20190213
  23. ABRAXANE [Suspect]
     Active Substance: PACLITAXEL
     Route: 041
     Dates: start: 20190319, end: 20190319
  24. GEMCITABINE. [Concomitant]
     Active Substance: GEMCITABINE
     Route: 041
     Dates: start: 20190404, end: 20190404
  25. ABRAXANE [Suspect]
     Active Substance: PACLITAXEL
     Route: 041
     Dates: start: 20190404, end: 20190404
  26. OLECLUMAB. [Concomitant]
     Active Substance: OLECLUMAB
     Route: 041
     Dates: start: 20190513, end: 20190513

REACTIONS (2)
  - Duodenal obstruction [Recovered/Resolved]
  - Blood bilirubin increased [Recovering/Resolving]

NARRATIVE: CASE EVENT DATE: 20190611
